FAERS Safety Report 11898402 (Version 1)
Quarter: 2016Q1

REPORT INFORMATION
  Report Type: Spontaneous
  Country: US (occurrence: None)
  Receive Date: 20160107
  Receipt Date: 20160107
  Transmission Date: 20160526
  Serious: Yes (Other)
  Sender: FDA-Public Use
  Company Number: None

PATIENT
  Age: 45 Year

DRUGS (6)
  1. MOBIC [Suspect]
     Active Substance: MELOXICAM
     Indication: SCIATICA
     Dosage: 2 PILLS
     Route: 048
  2. METROPROL [Concomitant]
  3. LOSARTAN. [Concomitant]
     Active Substance: LOSARTAN
  4. ADVIL [Concomitant]
     Active Substance: IBUPROFEN
  5. METOFORMIN [Concomitant]
  6. TRAMADOL. [Concomitant]
     Active Substance: TRAMADOL

REACTIONS (3)
  - Urticaria [None]
  - Scar [None]
  - Rash [None]

NARRATIVE: CASE EVENT DATE: 20150909
